FAERS Safety Report 21992399 (Version 2)
Quarter: 2023Q1

REPORT INFORMATION
  Report Type: Report from Study
  Country: US (occurrence: US)
  Receive Date: 20230215
  Receipt Date: 20230228
  Transmission Date: 20230418
  Serious: Yes (Death, Other)
  Sender: FDA-Public Use
  Company Number: US-SUN PHARMACEUTICAL INDUSTRIES LTD-2023R1-378335

PATIENT
  Age: 66 Year
  Sex: Male

DRUGS (1)
  1. METHOTREXATE [Suspect]
     Active Substance: METHOTREXATE
     Indication: Product used for unknown indication
     Dosage: UNK
     Route: 065

REACTIONS (11)
  - Toxicity to various agents [Fatal]
  - Delirium [Fatal]
  - Acute kidney injury [Fatal]
  - Acute lung injury [Fatal]
  - Acute respiratory distress syndrome [Fatal]
  - Chemical burn [Fatal]
  - Gastrointestinal haemorrhage [Fatal]
  - Coagulopathy [Fatal]
  - Thrombocytopenia [Fatal]
  - Pancytopenia [Fatal]
  - Rash [Fatal]
